FAERS Safety Report 11668191 (Version 1)
Quarter: 2015Q4

REPORT INFORMATION
  Report Type: Spontaneous
  Country: CN (occurrence: CN)
  Receive Date: 20151027
  Receipt Date: 20151027
  Transmission Date: 20160304
  Serious: Yes (Hospitalization, Other)
  Sender: FDA-Public Use
  Company Number: CN-ASTRAZENECA-2015SF02743

PATIENT
  Sex: Female

DRUGS (1)
  1. IRESSA [Suspect]
     Active Substance: GEFITINIB
     Indication: ADENOCARCINOMA
     Route: 048
     Dates: start: 20150806, end: 20151016

REACTIONS (5)
  - Nausea [Unknown]
  - Haematemesis [Unknown]
  - Headache [Unknown]
  - Coma [Unknown]
  - Vomiting [Not Recovered/Not Resolved]
